FAERS Safety Report 7142687-9 (Version None)
Quarter: 2010Q4

REPORT INFORMATION
  Report Type: 
  Country: None (occurrence: None)
  Receive Date: 20101207
  Receipt Date: 20101129
  Transmission Date: 20110411
  Serious: Yes (Hospitalization)
  Sender: FDA-Public Use
  Company Number: FI-ABBOTT-10P-055-0686336-00

PATIENT
  Sex: Female

DRUGS (3)
  1. KLACID TABLETS [Suspect]
     Indication: SINUSITIS
     Dosage: 500 MILLIGRAMS, DAILY
     Route: 048
     Dates: start: 20100908
  2. DOXIMED [Suspect]
     Indication: SINUSITIS
     Dosage: 150 MILLIGRAMS, DAILY
     Route: 048
     Dates: start: 20100907, end: 20100908
  3. DROSPIRENONE AND ETHINYL ESTRADIOL [Concomitant]
     Indication: PRODUCT USED FOR UNKNOWN INDICATION
     Dosage: 1X1
     Route: 048

REACTIONS (1)
  - ANAPHYLACTIC SHOCK [None]
